FAERS Safety Report 4284710-5 (Version None)
Quarter: 2004Q1

REPORT INFORMATION
  Report Type: 
  Country: None (occurrence: None)
  Receive Date: 20040130
  Receipt Date: 20040121
  Transmission Date: 20041129
  Serious: Yes (Hospitalization)
  Sender: FDA-Public Use
  Company Number: 2003118016

PATIENT
  Age: 72 Year
  Sex: Female
  Weight: 60 kg

DRUGS (5)
  1. LIPITOR [Suspect]
     Indication: ILL-DEFINED DISORDER
     Dosage: 40 MG (DAILY), ORAL
     Route: 048
     Dates: start: 19960801, end: 20031201
  2. CAPTOPRIL [Concomitant]
  3. CLOPIDOGREL BISULFATE [Concomitant]
  4. ACENOCOUMAROL (ACENOCOUMAROL) [Concomitant]
  5. GLYBURIDE [Concomitant]

REACTIONS (2)
  - ALOPECIA [None]
  - PANCREATITIS [None]
